FAERS Safety Report 9296713 (Version 1)
Quarter: 2013Q2

REPORT INFORMATION
  Report Type: Report from Study
  Country: AR (occurrence: AR)
  Receive Date: 20130517
  Receipt Date: 20130517
  Transmission Date: 20140414
  Serious: Yes (Hospitalization, Other)
  Sender: FDA-Public Use
  Company Number: PHHY2013AR049549

PATIENT
  Sex: Female

DRUGS (3)
  1. DIOVAN [Suspect]
     Indication: HYPERTENSION
     Dosage: 1 DF, (80 MG) DAILY
     Route: 048
     Dates: start: 2004
  2. DIOVAN [Suspect]
     Dosage: 1 DF, (160 MG) DAILY
     Route: 048
  3. MULTIVIT [Concomitant]
     Dosage: UNK UKN, UNK

REACTIONS (4)
  - Myocarditis [Recovered/Resolved]
  - Hypertension [Unknown]
  - Blindness [Not Recovered/Not Resolved]
  - Drug resistance [Unknown]
